FAERS Safety Report 14649326 (Version 1)
Quarter: 2018Q1

REPORT INFORMATION
  Report Type: Report from Study
  Country: NL (occurrence: NL)
  Receive Date: 20180316
  Receipt Date: 20180316
  Transmission Date: 20180509
  Serious: Yes (Hospitalization, Other)
  Sender: FDA-Public Use
  Company Number: NL-ASTELLAS-2018US012448

PATIENT
  Age: 75 Year
  Sex: Male

DRUGS (3)
  1. ENZALUTAMIDE [Suspect]
     Active Substance: ENZALUTAMIDE
     Indication: PRODUCT USED FOR UNKNOWN INDICATION
     Dosage: UNK, UNKNOWN FREQ.
     Route: 065
  2. XGEVA [Suspect]
     Active Substance: DENOSUMAB
     Dosage: 120 MG (1.70 ML), EVERY 4 WEEKS
     Route: 058
  3. XGEVA [Suspect]
     Active Substance: DENOSUMAB
     Indication: PROPHYLAXIS
     Dosage: UNK UNK, UNKNOWN FREQ.
     Route: 058

REACTIONS (4)
  - Dehydration [Recovering/Resolving]
  - Feeling abnormal [Recovering/Resolving]
  - Gait inability [Recovering/Resolving]
  - Neoplasm progression [Not Recovered/Not Resolved]

NARRATIVE: CASE EVENT DATE: 20180115
